FAERS Safety Report 9632655 (Version 1)
Quarter: 2013Q4

REPORT INFORMATION
  Report Type: Spontaneous
  Country: BE (occurrence: BE)
  Receive Date: 20131018
  Receipt Date: 20131018
  Transmission Date: 20140711
  Serious: Yes (Other)
  Sender: FDA-Public Use
  Company Number: BE-GLAXOSMITHKLINE-B0931808A

PATIENT
  Age: 36 Year
  Sex: 0
  Weight: 54 kg

DRUGS (5)
  1. WELLBUTRIN [Suspect]
     Indication: DEPRESSION
     Dosage: 150MG IN THE MORNING
     Route: 065
     Dates: start: 201308
  2. TRAZODONE [Concomitant]
     Route: 065
  3. TEMESTA [Concomitant]
     Route: 065
  4. REBIF [Concomitant]
     Route: 058
  5. DAFALGAN [Concomitant]
     Dosage: 500MG WEEKLY
     Route: 065

REACTIONS (19)
  - Ulcerative keratitis [Recovering/Resolving]
  - Sneezing [Recovering/Resolving]
  - Rhinorrhoea [Recovering/Resolving]
  - Nasopharyngitis [Recovering/Resolving]
  - Fatigue [Not Recovered/Not Resolved]
  - Balance disorder [Recovering/Resolving]
  - Nystagmus [Recovering/Resolving]
  - Dizziness [Recovering/Resolving]
  - Muscular weakness [Recovering/Resolving]
  - Poor quality sleep [Recovering/Resolving]
  - Eye pain [Recovering/Resolving]
  - Diplopia [Recovering/Resolving]
  - Gait disturbance [Recovering/Resolving]
  - Coordination abnormal [Recovering/Resolving]
  - Somnolence [Recovering/Resolving]
  - Incoherent [Recovering/Resolving]
  - Speech disorder [Recovering/Resolving]
  - Tearfulness [Not Recovered/Not Resolved]
  - Depression [Not Recovered/Not Resolved]
